FAERS Safety Report 14137128 (Version 2)
Quarter: 2017Q4

REPORT INFORMATION
  Report Type: Report from Study
  Country: AR (occurrence: AR)
  Receive Date: 20171027
  Receipt Date: 20171031
  Transmission Date: 20180321
  Serious: Yes (Life-Threatening)
  Sender: FDA-Public Use
  Company Number: AR-PFIZER INC-2017456396

PATIENT

DRUGS (1)
  1. VANCOCIN [Suspect]
     Active Substance: VANCOMYCIN HYDROCHLORIDE
     Dosage: UNK

REACTIONS (1)
  - Haemolytic anaemia [Recovered/Resolved]
